FAERS Safety Report 18224931 (Version 2)
Quarter: 2020Q3

REPORT INFORMATION
  Report Type: Report from Study
  Country: BR (occurrence: BR)
  Receive Date: 20200903
  Receipt Date: 20200930
  Transmission Date: 20201103
  Serious: Yes (Death)
  Sender: FDA-Public Use
  Company Number: BR-ROCHE-2668685

PATIENT
  Age: 66 Year
  Sex: Female
  Weight: 85 kg

DRUGS (36)
  1. DECADRON [Concomitant]
     Active Substance: DEXAMETHASONE
     Indication: COVID-19
     Dates: start: 20200815, end: 20200815
  2. CEFTRIAXONE. [Concomitant]
     Active Substance: CEFTRIAXONE
     Indication: COVID-19
     Dates: start: 20200817, end: 20200824
  3. METHYLPREDNISOLONE. [Concomitant]
     Active Substance: METHYLPREDNISOLONE
     Indication: COVID-19
     Dates: start: 20200817, end: 20200818
  4. HALDOL [Concomitant]
     Active Substance: HALOPERIDOL
     Indication: SEDATION
     Dates: start: 20200825, end: 20200827
  5. AMLODIPINE [Concomitant]
     Active Substance: AMLODIPINE BESYLATE
     Indication: VIRAL MYOCARDITIS
     Dates: start: 20200825, end: 20200827
  6. REMDESIVIR. [Suspect]
     Active Substance: REMDESIVIR
     Indication: COVID-19 PNEUMONIA
     Dosage: ON 27/AUG/2020, AT 11:47 HOURS; MOST RECENT DOSE (20 ML) OF REMDESIVIR ADMINISTERED PRIOR TO AE/SAE
     Route: 042
     Dates: start: 20200719
  7. ESOMEPRAZOLE. [Concomitant]
     Active Substance: ESOMEPRAZOLE MAGNESIUM
     Dates: start: 20200812, end: 20200815
  8. DUOFLAM (BRAZIL) [Concomitant]
     Dosage: 1 AMPLUE
     Dates: start: 20200812, end: 20200812
  9. LOSARTAN. [Concomitant]
     Active Substance: LOSARTAN
     Indication: VIRAL MYOCARDITIS
     Dates: start: 20200825, end: 20200827
  10. PREDNISOLONE. [Concomitant]
     Active Substance: PREDNISOLONE
     Indication: COVID-19
     Dates: start: 20200806, end: 20200810
  11. OMEPRAZOLE. [Concomitant]
     Active Substance: OMEPRAZOLE
     Dates: start: 20200816, end: 20200827
  12. HYDROCORTISONE. [Concomitant]
     Active Substance: HYDROCORTISONE
     Indication: COVID-19
     Dates: start: 20200818, end: 20200827
  13. ACETYLCYSTEINE. [Concomitant]
     Active Substance: ACETYLCYSTEINE
     Dates: start: 20200820, end: 20200827
  14. FUROSEMIDE. [Concomitant]
     Active Substance: FUROSEMIDE
     Indication: VIRAL MYOCARDITIS
     Dates: start: 20200825, end: 20200827
  15. TOCILIZUMAB. [Suspect]
     Active Substance: TOCILIZUMAB
     Indication: COVID-19 PNEUMONIA
     Dosage: THIS WAS THE MOST RECENT DOSE OF BLINDED TOCILIZUMAB ADMINISTERED PRIOR TO AE/SAE ONSET AT 07:20 HOU
     Route: 042
     Dates: start: 20200819
  16. HYDROXYCHLOROQUINE [Concomitant]
     Active Substance: HYDROXYCHLOROQUINE
     Indication: COVID-19
     Dates: start: 20200806, end: 20200815
  17. MIDAZOLAM. [Concomitant]
     Active Substance: MIDAZOLAM
     Indication: SEDATION
     Dates: start: 20200817, end: 20200827
  18. NITROGLYCERIN. [Concomitant]
     Active Substance: NITROGLYCERIN
     Indication: ATRIAL FIBRILLATION
     Dates: start: 20200819, end: 20200821
  19. WATER?SOLUBLE VITAMINS [Concomitant]
     Indication: VITAMIN SUPPLEMENTATION
     Dosage: 1
     Dates: start: 20200825, end: 20200827
  20. FENTANYL. [Concomitant]
     Active Substance: FENTANYL
     Indication: SEDATION
  21. DOBUTAMINE [Concomitant]
     Active Substance: DOBUTAMINE HYDROCHLORIDE
     Indication: ATRIAL FIBRILLATION
     Dates: start: 20200819, end: 20200821
  22. INSULIN [Concomitant]
     Active Substance: INSULIN NOS
     Indication: DIABETES MELLITUS
     Dates: start: 20200819, end: 20200827
  23. NITROPRUSSIDE [Concomitant]
     Active Substance: NITROPRUSSIDE
     Indication: VIRAL MYOCARDITIS
  24. ELIQUIS [Concomitant]
     Active Substance: APIXABAN
     Indication: THROMBOSIS
     Dates: start: 20200806, end: 20200815
  25. METFORMIN [Concomitant]
     Active Substance: METFORMIN HYDROCHLORIDE
     Indication: DIABETES MELLITUS
     Dates: end: 20200816
  26. ASCORBIC ACID. [Concomitant]
     Active Substance: ASCORBIC ACID
     Indication: VITAMIN SUPPLEMENTATION
     Dosage: 1 AMPULE
     Dates: start: 20200820, end: 20200824
  27. INSULIN [Concomitant]
     Active Substance: INSULIN NOS
     Dates: start: 20200816, end: 20200818
  28. AZITHROMYCIN ANHYDROUS. [Concomitant]
     Active Substance: AZITHROMYCIN ANHYDROUS
     Indication: COVID-19
     Dates: start: 20200806, end: 20200810
  29. CLARITHROMYCIN. [Concomitant]
     Active Substance: CLARITHROMYCIN
     Indication: COVID-19
     Dates: start: 20200812, end: 20200816
  30. FENTANYL. [Concomitant]
     Active Substance: FENTANYL
     Indication: ANALGESIC THERAPY
     Dates: start: 20200817, end: 20200827
  31. MOXIFLOXACIN. [Concomitant]
     Active Substance: MOXIFLOXACIN
     Indication: COVID-19
     Dates: start: 20200815, end: 20200815
  32. ENOXAPARIN [Concomitant]
     Active Substance: ENOXAPARIN
     Indication: THROMBOSIS
     Dates: start: 20200817, end: 20200818
  33. ENOXAPARIN [Concomitant]
     Active Substance: ENOXAPARIN
     Dates: start: 20200818, end: 20200823
  34. EPINEPHRINE. [Concomitant]
     Active Substance: EPINEPHRINE
     Indication: HYPOTENSION
     Dates: start: 20200817, end: 20200818
  35. ROCURONIUM [Concomitant]
     Active Substance: ROCURONIUM BROMIDE
     Indication: SEDATION
     Dates: start: 20200820, end: 20200827
  36. DIGOXIN. [Concomitant]
     Active Substance: DIGOXIN
     Indication: VIRAL MYOCARDITIS
     Dates: start: 20200825, end: 20200827

REACTIONS (1)
  - Septic shock [Fatal]

NARRATIVE: CASE EVENT DATE: 20200827
